FAERS Safety Report 4393081-5 (Version None)
Quarter: 2004Q3

REPORT INFORMATION
  Report Type: 
  Country: None (occurrence: None)
  Receive Date: 20040702
  Receipt Date: 20040407
  Transmission Date: 20050211
  Serious: Yes (Other)
  Sender: FDA-Public Use
  Company Number: 2004UW06986

PATIENT
  Age: 61 Year
  Sex: Female
  Weight: 71.6683 kg

DRUGS (6)
  1. CRESTOR [Suspect]
     Indication: BLOOD CHOLESTEROL INCREASED
     Dosage: 10 MG PO
     Route: 048
     Dates: start: 20040331
  2. PAXIL [Concomitant]
  3. CARDIZEM [Concomitant]
  4. DIOVAN [Concomitant]
  5. SINGULAIR [Concomitant]
  6. ASPIRIN [Concomitant]

REACTIONS (2)
  - ABDOMINAL PAIN UPPER [None]
  - SLUGGISHNESS [None]
